FAERS Safety Report 7035850-9 (Version None)
Quarter: 2010Q4

REPORT INFORMATION
  Report Type: 
  Country: None (occurrence: None)
  Receive Date: 20101007
  Receipt Date: 20101007
  Transmission Date: 20110411
  Serious: Yes (Life-Threatening)
  Sender: FDA-Public Use
  Company Number: None

PATIENT
  Age: 59 Year
  Sex: Male
  Weight: 101.6 kg

DRUGS (1)
  1. FLUCONAZOLE [Suspect]
     Indication: FUNGAEMIA
     Dosage: 400 MG OTHER IV
     Route: 042
     Dates: start: 20101002, end: 20101006

REACTIONS (4)
  - ACUTE MYOCARDIAL INFARCTION [None]
  - CARDIAC ARREST [None]
  - SEPTIC SHOCK [None]
  - TORSADE DE POINTES [None]
